APPROVED DRUG PRODUCT: AZITHROMYCIN
Active Ingredient: AZITHROMYCIN
Strength: EQ 500MG BASE
Dosage Form/Route: TABLET;ORAL
Application: A213056 | Product #001
Applicant: ZYDUS PHARMACEUTICALS USA INC
Approved: Apr 7, 2023 | RLD: No | RS: No | Type: DISCN